FAERS Safety Report 6529168-8 (Version None)
Quarter: 2010Q1

REPORT INFORMATION
  Report Type: 
  Country: None (occurrence: None)
  Receive Date: 20100107
  Receipt Date: 20091229
  Transmission Date: 20100710
  Serious: Yes (Other)
  Sender: FDA-Public Use
  Company Number: US-TYCO HEALTHCARE/MALLINCKRODT-T200902378

PATIENT

DRUGS (3)
  1. OPTIMARK [Suspect]
     Dosage: UNK
  2. MULTIHANCE [Suspect]
     Dosage: UNK
  3. PROHANCE [Suspect]
     Dosage: UNK

REACTIONS (5)
  - ANXIETY [None]
  - EMOTIONAL DISTRESS [None]
  - INJURY [None]
  - NEPHROGENIC SYSTEMIC FIBROSIS [None]
  - PAIN [None]
